FAERS Safety Report 10547988 (Version 5)
Quarter: 2015Q3

REPORT INFORMATION
  Report Type: Spontaneous
  Country: US (occurrence: US)
  Receive Date: 20141028
  Receipt Date: 20150710
  Transmission Date: 20151125
  Serious: Yes (Hospitalization)
  Sender: FDA-Public Use
  Company Number: US-PFIZER INC-2014295390

PATIENT
  Age: 78 Year
  Sex: Female
  Weight: 49.89 kg

DRUGS (9)
  1. SIMVASTATIN. [Concomitant]
     Active Substance: SIMVASTATIN
     Dosage: 20 MG, 1X/DAY, PILLS
     Route: 048
  2. SUTENT [Suspect]
     Active Substance: SUNITINIB MALATE
     Dosage: 37.5 MG, 1X/DAY (ONE PILL OF 25 MG AND ANOTHER OF 12.5 MG)
     Route: 048
     Dates: start: 2014
  3. TYLENOL [Concomitant]
     Active Substance: ACETAMINOPHEN
     Indication: HEADACHE
     Dosage: 500 MG PILLS (ONE OR TWO NO MORE THAN THAT), AS NEEDED
  4. ARMOUR THYROID [Concomitant]
     Active Substance: THYROID, PORCINE\THYROID, UNSPECIFIED
     Dosage: 90 MG, 1X/DAY, PILLS
     Route: 048
  5. SUTENT [Suspect]
     Active Substance: SUNITINIB MALATE
     Indication: METASTATIC RENAL CELL CARCINOMA
     Dosage: 37.5 MG, ONCE DAILY 4 WEEKS ON/2 WEEKS OFF
     Route: 048
     Dates: start: 20140331
  6. SUTENT [Suspect]
     Active Substance: SUNITINIB MALATE
     Dosage: 12.5 MG, UNK
     Dates: start: 20150314
  7. HYDROCHLOROTHIAZIDE. [Concomitant]
     Active Substance: HYDROCHLOROTHIAZIDE
     Dosage: 25 MG, 1X/, PILLS
     Route: 048
  8. LISINOPRIL. [Concomitant]
     Active Substance: LISINOPRIL
     Dosage: 20 MG, 1X/DAY, PILLS
     Route: 048
  9. FENOFIBRATE. [Concomitant]
     Active Substance: FENOFIBRATE
     Dosage: 134 MG, 1X/DAY
     Route: 048

REACTIONS (10)
  - Dehydration [Recovered/Resolved]
  - Pain in extremity [Unknown]
  - Throat irritation [Unknown]
  - Oral pain [Unknown]
  - Oral discomfort [Unknown]
  - Dysgeusia [Unknown]
  - Decreased appetite [Unknown]
  - Pain [Not Recovered/Not Resolved]
  - Weight decreased [Unknown]
  - Diarrhoea [Unknown]

NARRATIVE: CASE EVENT DATE: 2014
